FAERS Safety Report 4881843-7 (Version None)
Quarter: 2006Q1

REPORT INFORMATION
  Report Type: 
  Country: None (occurrence: None)
  Receive Date: 20060112
  Receipt Date: 20060103
  Transmission Date: 20060701
  Serious: Yes (Other)
  Sender: FDA-Public Use
  Company Number: 2005075696

PATIENT
  Age: 77 Year
  Sex: Female
  Weight: 72.1219 kg

DRUGS (16)
  1. CELEBREX [Suspect]
     Indication: OSTEOARTHRITIS
     Dosage: (1 IN 1 D)
     Dates: start: 20050101, end: 20050101
  2. MOBIC [Suspect]
     Indication: OSTEOARTHRITIS
  3. LOTREL [Concomitant]
  4. FOLIC ACID [Concomitant]
  5. OMEGA-3 (OMEGA-3 TRIGLYCERIDES) [Concomitant]
  6. B100 (AMINOBENZOIC ACID, BIOTIN, CHOLINE BITARTRATE, FOLIC ACID, INOSI [Concomitant]
  7. FLAXSEED OIL (LINSEED OIL) [Concomitant]
  8. CHONDROITIN/GLUCOSAMINE (CHONDROITIN, GLUCOSAMINE) [Concomitant]
  9. MONTELUKAST (MONTELUKAST) [Concomitant]
  10. ADVAIR DISKUS 100/50 [Concomitant]
  11. CALCIUM (CALCIUM) [Concomitant]
  12. QUININE SULFATE [Concomitant]
  13. SOY ISOFLAVONES (SOY ISOFLAVONES) [Concomitant]
  14. COENZYME Q10 [Concomitant]
  15. ASPIRIN [Concomitant]
  16. BEXTRA [Concomitant]

REACTIONS (4)
  - LOCAL SWELLING [None]
  - PRURITUS [None]
  - RASH [None]
  - SWELLING FACE [None]
